FAERS Safety Report 8342905-5 (Version None)
Quarter: 2012Q2

REPORT INFORMATION
  Report Type: 
  Country: None (occurrence: None)
  Receive Date: 20120504
  Receipt Date: 20120504
  Transmission Date: 20120825
  Serious: Yes (Hospitalization)
  Sender: FDA-Public Use
  Company Number: None

PATIENT
  Sex: Male
  Weight: 104.33 kg

DRUGS (2)
  1. RITUXIMAB 375 MG/M2 GENENTECH [Suspect]
     Dosage: 810-840 MG 5 DOSES IV
     Route: 042
     Dates: start: 20110523, end: 20110822
  2. ZEVALIN [Suspect]
     Indication: LYMPHOMA
     Dosage: 31.5 MCI ONCE IV
     Route: 042
     Dates: start: 20111116

REACTIONS (1)
  - NO ADVERSE EVENT [None]
